FAERS Safety Report 12396388 (Version 1)
Quarter: 2016Q2

REPORT INFORMATION
  Report Type: Report from Study
  Country: IT (occurrence: IT)
  Receive Date: 20160524
  Receipt Date: 20160524
  Transmission Date: 20160815
  Serious: Yes (Other)
  Sender: FDA-Public Use
  Company Number: IT-BAXTER-2016BAX026155

PATIENT

DRUGS (4)
  1. ENDOXAN BAXTER [Suspect]
     Active Substance: CYCLOPHOSPHAMIDE
     Indication: OFF LABEL USE
  2. ENDOXAN BAXTER [Suspect]
     Active Substance: CYCLOPHOSPHAMIDE
     Indication: FUNGAL INFECTION
     Route: 065
  3. TIOTEPA [Suspect]
     Active Substance: THIOTEPA
     Indication: FUNGAL INFECTION
     Route: 065
  4. FLUDARABINE [Suspect]
     Active Substance: FLUDARABINE PHOSPHATE
     Indication: FUNGAL INFECTION
     Route: 065

REACTIONS (6)
  - Gastroenteritis rotavirus [Unknown]
  - Gastroenteritis Escherichia coli [Unknown]
  - Chronic graft versus host disease [Unknown]
  - Osteoporosis [Unknown]
  - Acute prerenal failure [Unknown]
  - Herpes zoster [Unknown]
